FAERS Safety Report 6956048-6 (Version None)
Quarter: 2010Q3

REPORT INFORMATION
  Report Type: 
  Country: None (occurrence: None)
  Receive Date: 20100830
  Receipt Date: 20100820
  Transmission Date: 20110219
  Serious: Yes (Hospitalization)
  Sender: FDA-Public Use
  Company Number: GXKR2010GB09390

PATIENT
  Age: 63 Year
  Sex: Female

DRUGS (3)
  1. ALENDRONIC ACID (NGX) [Suspect]
     Indication: OSTEOPENIA
     Dosage: UNK
     Route: 065
  2. PREDNISOLONE [Concomitant]
  3. VITAMIN D [Concomitant]

REACTIONS (3)
  - INTERNAL FIXATION OF FRACTURE [None]
  - PAIN IN EXTREMITY [None]
  - STRESS FRACTURE [None]
